FAERS Safety Report 7751597-5 (Version None)
Quarter: 2011Q3

REPORT INFORMATION
  Report Type: 
  Country: None (occurrence: None)
  Receive Date: 20110914
  Receipt Date: 20110912
  Transmission Date: 20111222
  Serious: Yes (Other)
  Sender: FDA-Public Use
  Company Number: PHHY2011FR81062

PATIENT
  Age: 78 Year
  Sex: Female

DRUGS (1)
  1. ZOLEDRONOC ACID [Suspect]
     Indication: OSTEOPOROSIS
     Dosage: UNK UKN, UNK
     Route: 042
     Dates: start: 20110701

REACTIONS (7)
  - MUSCULAR WEAKNESS [None]
  - HEADACHE [None]
  - CHILLS [None]
  - APHAGIA [None]
  - INFLUENZA LIKE ILLNESS [None]
  - LETHARGY [None]
  - PYREXIA [None]
